FAERS Safety Report 8734004 (Version 3)
Quarter: 2012Q4

REPORT INFORMATION
  Report Type: 
  Country: US (occurrence: US)
  Receive Date: 20120821
  Receipt Date: 20121003
  Transmission Date: 20130627
  Serious: Yes (Other)
  Sender: FDA-Public Use
  Company Number: US-JNJFOC-20120807590

PATIENT
  Age: 28 None
  Sex: Female
  Weight: 65.8 kg

DRUGS (6)
  1. CONCERTA [Suspect]
     Indication: NARCOLEPSY
     Route: 048
     Dates: start: 2006, end: 201205
  2. METHYLPHENIDATE HCL [Suspect]
     Indication: NARCOLEPSY
     Route: 048
     Dates: start: 201205
  3. SYNTHROID [Concomitant]
     Indication: HYPOTHYROIDISM
     Route: 048
  4. UNKNOWN MEDICATION [Concomitant]
     Indication: GASTROOESOPHAGEAL REFLUX DISEASE
     Route: 048
  5. SAVELLA [Concomitant]
     Indication: DEPRESSION
     Route: 048
     Dates: end: 201208
  6. CLONAZEPAM [Concomitant]
     Indication: PANIC DISORDER
     Dosage: 0.5mg as needed
     Route: 048

REACTIONS (8)
  - Abdominal distension [Recovered/Resolved]
  - Abdominal pain [Recovered/Resolved]
  - Heart rate increased [Not Recovered/Not Resolved]
  - Abnormal loss of weight [Recovered/Resolved]
  - Heart rate abnormal [Not Recovered/Not Resolved]
  - Off label use [Unknown]
  - Weight increased [Not Recovered/Not Resolved]
  - Dyspnoea [Not Recovered/Not Resolved]
